FAERS Safety Report 4480312-6 (Version None)
Quarter: 2004Q3

REPORT INFORMATION
  Report Type: 
  Country: None (occurrence: None)
  Receive Date: 20040923
  Receipt Date: 20040604
  Transmission Date: 20050211
  Serious: No
  Sender: FDA-Public Use
  Company Number: USA030946549

PATIENT
  Age: 61 Year
  Sex: Female
  Weight: 64 kg

DRUGS (16)
  1. FORTEO [Suspect]
     Indication: OSTEOPOROSIS
     Dosage: 20 UG/DAY
     Dates: start: 20030905
  2. BEXTRA [Concomitant]
  3. SYNTHROID [Concomitant]
  4. FLONASE [Concomitant]
  5. ATROVENT [Concomitant]
  6. GUAIFENESIN [Concomitant]
  7. ZYRTEC [Concomitant]
  8. COLAZAL (BALSALAZIDE SODIUM) [Concomitant]
  9. ZOLOFT [Concomitant]
  10. ALBUTEROL [Concomitant]
  11. NEXIUM [Concomitant]
  12. MORPHINE [Concomitant]
  13. PERCOCET [Concomitant]
  14. AMBIEN [Concomitant]
  15. LEXAPRO [Concomitant]
  16. CELEBREX [Concomitant]

REACTIONS (11)
  - ARTHRALGIA [None]
  - BONE PAIN [None]
  - DECREASED APPETITE [None]
  - INJECTION SITE ERYTHEMA [None]
  - INJECTION SITE HAEMORRHAGE [None]
  - INJECTION SITE MASS [None]
  - JOINT RANGE OF MOTION DECREASED [None]
  - MUSCLE CRAMP [None]
  - NAUSEA [None]
  - PAIN IN EXTREMITY [None]
  - ROTATOR CUFF SYNDROME [None]
